FAERS Safety Report 4580197-3 (Version None)
Quarter: 2005Q1

REPORT INFORMATION
  Report Type: 
  Country: None (occurrence: None)
  Receive Date: 20050209
  Receipt Date: 20050124
  Transmission Date: 20050727
  Serious: Yes (Other)
  Sender: FDA-Public Use
  Company Number: JP-JNJFOC-20050200697

PATIENT
  Age: 67 Year
  Sex: Female

DRUGS (12)
  1. RISPERDAL [Suspect]
     Route: 049
  2. RISPERDAL [Suspect]
     Indication: SCHIZOPHRENIA
     Route: 049
  3. LACTULOSE [Concomitant]
     Route: 049
  4. MAGNESIUM OXIDE [Concomitant]
     Route: 049
  5. DIMETICONE [Concomitant]
     Route: 049
  6. MOSAPRIDE CITRATE [Concomitant]
     Route: 049
  7. ASCORBIC ACID [Concomitant]
  8. CALCIUM PANTOTHENATE [Concomitant]
     Route: 049
  9. LACTULOSE [Concomitant]
     Route: 049
  10. SPIRONOLACTONE [Concomitant]
     Dosage: 50-200 MG DAILY
     Route: 049
  11. OMEPRAZOLE [Concomitant]
     Route: 049
  12. SENNOSIDE [Concomitant]
     Route: 049

REACTIONS (1)
  - RHABDOMYOLYSIS [None]
